FAERS Safety Report 24993394 (Version 1)
Quarter: 2025Q1

REPORT INFORMATION
  Report Type: Spontaneous
  Country: BR (occurrence: BR)
  Receive Date: 20250221
  Receipt Date: 20250221
  Transmission Date: 20250409
  Serious: Yes (Hospitalization, Other)
  Sender: NOVO NORDISK
  Company Number: BR-NOVOPROD-1374088

PATIENT
  Age: 589 Month
  Sex: Female

DRUGS (6)
  1. SAXENDA [Suspect]
     Active Substance: LIRAGLUTIDE
  2. SAXENDA [Suspect]
     Active Substance: LIRAGLUTIDE
  3. SAXENDA [Suspect]
     Active Substance: LIRAGLUTIDE
  4. SAXENDA [Suspect]
     Active Substance: LIRAGLUTIDE
     Indication: Product used for unknown indication
  5. DAPAGLIFLOZIN [Concomitant]
     Active Substance: DAPAGLIFLOZIN
     Indication: Type 2 diabetes mellitus
  6. GLIFAGE [Concomitant]
     Active Substance: METFORMIN HYDROCHLORIDE
     Indication: Type 2 diabetes mellitus

REACTIONS (3)
  - Cardiac disorder [Unknown]
  - Gastrooesophageal reflux disease [Unknown]
  - Malaise [Unknown]
